FAERS Safety Report 6288026-7 (Version None)
Quarter: 2009Q3

REPORT INFORMATION
  Report Type: 
  Country: None (occurrence: None)
  Receive Date: 20090729
  Receipt Date: 20090722
  Transmission Date: 20100115
  Serious: Yes (Congenital Anomaly)
  Sender: FDA-Public Use
  Company Number: FR-ROCHE-645007

PATIENT
  Sex: Male
  Weight: 3.2 kg

DRUGS (1)
  1. CELLCEPT [Suspect]
     Indication: AUTOIMMUNE HEPATITIS
     Dates: start: 20030224, end: 20080701

REACTIONS (2)
  - CRANIOSYNOSTOSIS [None]
  - EAR MALFORMATION [None]
